FAERS Safety Report 8037631-6 (Version None)
Quarter: 2012Q1

REPORT INFORMATION
  Report Type: 
  Country: None (occurrence: None)
  Receive Date: 20120111
  Receipt Date: 20120102
  Transmission Date: 20120608
  Serious: Yes (Death)
  Sender: FDA-Public Use
  Company Number: US-BAYER-2012-001049

PATIENT
  Age: 33 Year
  Sex: Female

DRUGS (9)
  1. LITHIUM [Suspect]
     Dosage: UNK
     Route: 048
  2. LORATADINE [Suspect]
     Dosage: UNK
     Route: 048
  3. LAMOTRIGINE [Suspect]
     Dosage: UNK
     Route: 048
  4. TOPIRAMATE [Suspect]
     Dosage: UNK
     Route: 048
  5. PAROXETINE [Suspect]
     Dosage: UNK
     Route: 048
  6. COUGH AND COLD PREPARATIONS [Suspect]
  7. DIPHENHYDRAMINE HCL [Suspect]
     Dosage: UNK
     Route: 048
  8. ACETAMINOPHEN [Suspect]
     Dosage: UNK
     Route: 048
  9. QUETIAPINE [Suspect]
     Dosage: UNK
     Route: 048

REACTIONS (1)
  - TOXICITY TO VARIOUS AGENTS [None]
